FAERS Safety Report 18682611 (Version 1)
Quarter: 2020Q4

REPORT INFORMATION
  Report Type: Spontaneous
  Country: ES (occurrence: ES)
  Receive Date: 20201229
  Receipt Date: 20201229
  Transmission Date: 20210114
  Serious: Yes (Hospitalization, Other)
  Sender: FDA-Public Use
  Company Number: ES-ACCORD-212529

PATIENT
  Age: 63 Year
  Sex: Female

DRUGS (5)
  1. TWICOR [Suspect]
     Active Substance: EZETIMIBE\ROSUVASTATIN
     Indication: HYPERCHOLESTEROLAEMIA
     Dosage: 1 TABLET / 24H, STRENGTH: 20 MG / 10 MG, 30 TABLETS
     Route: 048
     Dates: start: 20200207, end: 20201130
  2. ACETYLSALICYLIC ACID CINFA [Suspect]
     Active Substance: ASPIRIN
     Indication: SYSTEMIC SCLERODERMA
     Dosage: 1 TABLET/24H, STRENGTH: 100 MG, EFG, 30 TABLETS
     Route: 048
     Dates: start: 20120201, end: 20201130
  3. BOSENTAN. [Suspect]
     Active Substance: BOSENTAN
     Indication: SYSTEMIC SCLERODERMA
     Dosage: 2882A, 62.5 MG/12H
     Route: 048
     Dates: start: 20200206, end: 20201130
  4. ESOMEPRAZOLE/ESOMEPRAZOLE MAGNESIUM/ESOMEPRAZOLE SODIUM [Suspect]
     Active Substance: ESOMEPRAZOLE
     Indication: OESOPHAGITIS
     Dosage: 1172A, 40 MG/12H
     Route: 048
     Dates: start: 20161130, end: 20201210
  5. ENALAPRIL [Suspect]
     Active Substance: ENALAPRIL
     Indication: HYPERTENSION
     Dosage: 10 MG/12H, 2142A
     Route: 048
     Dates: start: 20171130, end: 20201130

REACTIONS (1)
  - Hepatitis cholestatic [Recovering/Resolving]

NARRATIVE: CASE EVENT DATE: 20201125
